FAERS Safety Report 7481452-X (Version None)
Quarter: 2011Q2

REPORT INFORMATION
  Report Type: 
  Country: None (occurrence: None)
  Receive Date: 20110516
  Receipt Date: 20110502
  Transmission Date: 20111010
  Serious: Yes (Other)
  Sender: FDA-Public Use
  Company Number: HR-JNJFOC-20110502741

PATIENT
  Age: 81 Year
  Sex: Male
  Weight: 80 kg

DRUGS (4)
  1. ORMIDOL [Concomitant]
     Indication: HYPERTENSION
     Route: 048
     Dates: start: 20050101
  2. AMLOPIN [Concomitant]
     Indication: HYPERTENSION
     Route: 048
     Dates: start: 20050101
  3. NORMABEL [Concomitant]
     Indication: VASCULAR DEMENTIA
     Route: 048
     Dates: start: 20101027, end: 20110406
  4. RISPERDONE [Suspect]
     Indication: VASCULAR DEMENTIA
     Route: 048
     Dates: start: 20101027, end: 20110406

REACTIONS (8)
  - HYPERREFLEXIA [None]
  - MEMORY IMPAIRMENT [None]
  - TREMOR [None]
  - HYPERSOMNIA [None]
  - DYSARTHRIA [None]
  - SEBORRHOEA [None]
  - GAIT DISTURBANCE [None]
  - HYPERHIDROSIS [None]
